FAERS Safety Report 17499510 (Version 1)
Quarter: 2020Q1

REPORT INFORMATION
  Report Type: Spontaneous
  Country: US (occurrence: US)
  Receive Date: 20200304
  Receipt Date: 20200304
  Transmission Date: 20200409
  Serious: No
  Sender: FDA-Public Use
  Company Number: US-PTC THERAPEUTICS, INC.-US-2019PTC001438

PATIENT
  Sex: Male

DRUGS (1)
  1. EMFLAZA [Suspect]
     Active Substance: DEFLAZACORT
     Indication: DUCHENNE MUSCULAR DYSTROPHY
     Dosage: 24 MG, QD
     Route: 048
     Dates: start: 20160502

REACTIONS (10)
  - Tendon disorder [Unknown]
  - Asthenia [Unknown]
  - Gait disturbance [Unknown]
  - Snoring [Unknown]
  - Dysstasia [Unknown]
  - Enuresis [Unknown]
  - Loss of personal independence in daily activities [Unknown]
  - Muscle atrophy [Unknown]
  - Sitting disability [Unknown]
  - Fatigue [Unknown]
